FAERS Safety Report 22208505 (Version 1)
Quarter: 2023Q2

REPORT INFORMATION
  Report Type: Spontaneous
  Country: US (occurrence: US)
  Receive Date: 20230413
  Receipt Date: 20230413
  Transmission Date: 20230722
  Serious: No
  Sender: FDA-Public Use
  Company Number: US-BIOVITRUM-2023-US-008429

PATIENT
  Sex: Male
  Weight: 10.43 kg

DRUGS (10)
  1. SYNAGIS [Suspect]
     Active Substance: PALIVIZUMAB
     Indication: Truncus arteriosus persistent
     Dosage: MONTHLY
     Route: 030
  2. SYNAGIS [Suspect]
     Active Substance: PALIVIZUMAB
     Indication: Antiviral prophylaxis
  3. DIURIL [Concomitant]
     Active Substance: CHLOROTHIAZIDE
     Indication: Product used for unknown indication
     Dosage: 250 MG/5ML ORAL SUSP
  4. OPSUMIT [Concomitant]
     Active Substance: MACITENTAN
     Indication: Product used for unknown indication
  5. VITAMINS [Concomitant]
     Active Substance: VITAMINS
     Indication: Product used for unknown indication
     Dosage: 250-50/ML DROPS
  6. PROTONIX [Concomitant]
     Active Substance: PANTOPRAZOLE SODIUM
     Indication: Product used for unknown indication
     Dosage: 40 MG VIAL
  7. UPTRAVI [Concomitant]
     Active Substance: SELEXIPAG
     Indication: Product used for unknown indication
     Dosage: 200 MCG
  8. CAROSPIR [Concomitant]
     Active Substance: SPIRONOLACTONE
     Indication: Product used for unknown indication
     Dosage: 25 MG/5 ML ORAL SUSP
  9. ASPIRIN [Concomitant]
     Active Substance: ASPIRIN
     Indication: Product used for unknown indication
  10. SILDENAFIL CITRATE [Concomitant]
     Active Substance: SILDENAFIL CITRATE
     Indication: Product used for unknown indication

REACTIONS (2)
  - Dyspnoea exertional [Unknown]
  - Fatigue [Unknown]
